FAERS Safety Report 5730406-X (Version None)
Quarter: 2008Q2

REPORT INFORMATION
  Report Type: 
  Country: None (occurrence: None)
  Receive Date: 20080505
  Receipt Date: 20080505
  Transmission Date: 20081010
  Serious: Yes (Life-Threatening, Hospitalization)
  Sender: FDA-Public Use
  Company Number: None

PATIENT
  Age: 72 Year
  Sex: Female
  Weight: 68.9467 kg

DRUGS (1)
  1. ALLOPURINOL [Suspect]
     Indication: GOUT
     Dosage: 300 MG  DAILY  PO
     Route: 048
     Dates: start: 20070728, end: 20071029

REACTIONS (6)
  - APLASTIC ANAEMIA [None]
  - CONTUSION [None]
  - CREATININE RENAL CLEARANCE INCREASED [None]
  - GASTROINTESTINAL HAEMORRHAGE [None]
  - INCORRECT DOSE ADMINISTERED [None]
  - MELAENA [None]
